FAERS Safety Report 10095570 (Version 3)
Quarter: 2014Q2

REPORT INFORMATION
  Report Type: Spontaneous
  Country: GB (occurrence: GB)
  Receive Date: 20140422
  Receipt Date: 20140618
  Transmission Date: 20141212
  Serious: Yes (Hospitalization)
  Sender: FDA-Public Use
  Company Number: GB-ROCHE-1383432

PATIENT
  Age: 54 Year
  Sex: Female
  Weight: 92 kg

DRUGS (6)
  1. XOLAIR [Suspect]
     Indication: ASTHMA
     Route: 058
     Dates: start: 20131217
  2. XOLAIR [Suspect]
     Route: 058
     Dates: start: 20140408, end: 20140408
  3. PULMICORT [Concomitant]
  4. KLARICID [Concomitant]
  5. SYMBICORT [Concomitant]
  6. COMBIVENT [Concomitant]

REACTIONS (8)
  - Malaise [Recovered/Resolved]
  - Pallor [Recovered/Resolved]
  - Asthma [Not Recovered/Not Resolved]
  - Labile blood pressure [Recovered/Resolved]
  - Pulse abnormal [Recovered/Resolved]
  - Oxygen saturation abnormal [Recovered/Resolved]
  - Hypersensitivity [Recovered/Resolved]
  - Rash maculo-papular [Recovered/Resolved]
